FAERS Safety Report 16340744 (Version 1)
Quarter: 2019Q2

REPORT INFORMATION
  Report Type: Spontaneous
  Country: US (occurrence: US)
  Receive Date: 20190522
  Receipt Date: 20190522
  Transmission Date: 20190711
  Serious: Yes (Other)
  Sender: FDA-Public Use
  Company Number: US-CIPLA LTD.-2019US01685

PATIENT

DRUGS (1)
  1. TESTOSTERONE. [Suspect]
     Active Substance: TESTOSTERONE
     Indication: PRODUCT USED FOR UNKNOWN INDICATION
     Dosage: UNK, ONCE IN 2 WEEKS
     Route: 065
     Dates: end: 20190214

REACTIONS (9)
  - Product physical consistency issue [Unknown]
  - Depressed mood [Recovered/Resolved]
  - Product colour issue [Unknown]
  - Drug ineffective [Unknown]
  - Liquid product physical issue [Unknown]
  - Product deposit [Unknown]
  - Libido decreased [Recovered/Resolved]
  - Feeling abnormal [Recovered/Resolved]
  - Asthenia [Recovered/Resolved]
